FAERS Safety Report 7118796-7 (Version None)
Quarter: 2010Q4

REPORT INFORMATION
  Report Type: 
  Country: None (occurrence: None)
  Receive Date: 20101123
  Receipt Date: 20101021
  Transmission Date: 20110411
  Serious: No
  Sender: FDA-Public Use
  Company Number: US-KINGPHARMUSA00001-K201001322

PATIENT
  Sex: Female
  Weight: 63.492 kg

DRUGS (7)
  1. FLECTOR [Suspect]
     Indication: BACK PAIN
     Dosage: 1 PATCH, Q 12 HRS
     Route: 061
     Dates: start: 20100101, end: 20100101
  2. FLECTOR [Suspect]
     Dosage: 1 PATCH, Q 12 HRS,
     Route: 061
     Dates: start: 20100101
  3. TRAMADOL HCL [Concomitant]
     Indication: PAIN
     Dosage: 50 MG, QID
     Route: 048
  4. OXYCONTIN [Concomitant]
     Indication: PAIN
     Dosage: 10 MG, QD
     Route: 048
  5. ZOCOR [Concomitant]
     Indication: BLOOD CHOLESTEROL INCREASED
     Dosage: UNK
  6. HORMONES NOS [Concomitant]
     Indication: HORMONE REPLACEMENT THERAPY
     Dosage: UNK
  7. DICLOFENAC SODIUM [Concomitant]

REACTIONS (2)
  - APPLICATION SITE PRURITUS [None]
  - APPLICATION SITE RASH [None]
